FAERS Safety Report 9820717 (Version 1)
Quarter: 2014Q1

REPORT INFORMATION
  Report Type: Spontaneous
  Country: US (occurrence: None)
  Receive Date: 20140114
  Receipt Date: 20140114
  Transmission Date: 20141002
  Serious: Yes (Life-Threatening, Disabling, Other)
  Sender: FDA-Public Use
  Company Number: None

PATIENT
  Age: 43 Year
  Sex: Female
  Weight: 97.52 kg

DRUGS (1)
  1. RISPERIDONE [Suspect]
     Indication: SCHIZOPHRENIA
     Dosage: TAKEN BY MOUTH
     Dates: start: 2007

REACTIONS (13)
  - Weight increased [None]
  - Breast mass [None]
  - Hypothyroidism [None]
  - Bladder disorder [None]
  - Sexual dysfunction [None]
  - Syncope [None]
  - Premature menopause [None]
  - Herpes zoster [None]
  - Goitre [None]
  - Muscle disorder [None]
  - Hypertension [None]
  - Blood disorder [None]
  - Unevaluable event [None]
